FAERS Safety Report 8523436-6 (Version None)
Quarter: 2012Q3

REPORT INFORMATION
  Report Type: 
  Country: None (occurrence: None)
  Receive Date: 20120720
  Receipt Date: 20120718
  Transmission Date: 20120928
  Serious: Yes (Other)
  Sender: FDA-Public Use
  Company Number: US-PFIZER INC-2012173868

PATIENT
  Sex: Female

DRUGS (2)
  1. ARTHROTEC [Suspect]
     Dosage: UNK
  2. NEURONTIN [Suspect]
     Dosage: UNK
     Route: 048

REACTIONS (1)
  - CATARACT [None]
